FAERS Safety Report 10394899 (Version 3)
Quarter: 2015Q1

REPORT INFORMATION
  Report Type: Report from Study
  Country: AR (occurrence: AR)
  Receive Date: 20140820
  Receipt Date: 20150303
  Transmission Date: 20150720
  Serious: Yes (Death, Hospitalization, Other)
  Sender: FDA-Public Use
  Company Number: AR-BRISTOL-MYERS SQUIBB COMPANY-21315973

PATIENT
  Age: 73 Year
  Sex: Male

DRUGS (1)
  1. BELATACEPT [Suspect]
     Active Substance: BELATACEPT
     Indication: RENAL TRANSPLANT
     Dosage: UNK, Q4WK
     Route: 065
     Dates: start: 20140812

REACTIONS (4)
  - Viral infection [Unknown]
  - Post procedural discharge [Unknown]
  - Death [Fatal]
  - Colitis [Unknown]

NARRATIVE: CASE EVENT DATE: 20140723
